FAERS Safety Report 7580437-2 (Version None)
Quarter: 2011Q2

REPORT INFORMATION
  Report Type: 
  Country: None (occurrence: None)
  Receive Date: 20110629
  Receipt Date: 20110609
  Transmission Date: 20111010
  Serious: Yes (Hospitalization)
  Sender: FDA-Public Use
  Company Number: A0807060A

PATIENT
  Age: 61 Year
  Sex: Female

DRUGS (8)
  1. AVANDIA [Suspect]
     Indication: DIABETES MELLITUS
     Dosage: 4MG PER DAY
     Route: 048
     Dates: start: 20040101, end: 20070701
  2. INSULIN [Concomitant]
  3. ADVAIR DISKUS 100/50 [Concomitant]
  4. LOVASTATIN [Concomitant]
  5. LISINOPRIL [Concomitant]
  6. METFORMIN HCL [Concomitant]
  7. COMBIVENT [Concomitant]
  8. NEURONTIN [Concomitant]

REACTIONS (1)
  - MYOCARDIAL INFARCTION [None]
